FAERS Safety Report 9036708 (Version 1)
Quarter: 2013Q1

REPORT INFORMATION
  Report Type: Spontaneous
  Country: US (occurrence: None)
  Receive Date: 20130118
  Receipt Date: 20130118
  Transmission Date: 20140127
  Serious: No
  Sender: FDA-Public Use
  Company Number: None

PATIENT
  Age: 43 None
  Sex: Female

DRUGS (2)
  1. MOTRIN [Suspect]
  2. PHENTERMINE CLOMID [Concomitant]

REACTIONS (5)
  - Refusal of treatment by patient [None]
  - Antinuclear antibody positive [None]
  - Platelet count decreased [None]
  - Autoimmune hepatitis [None]
  - Drug-induced liver injury [None]
